FAERS Safety Report 9157944 (Version 1)
Quarter: 2013Q1

REPORT INFORMATION
  Report Type: Spontaneous
  Country: GB (occurrence: None)
  Receive Date: 20130213
  Receipt Date: 20130213
  Transmission Date: 20140127
  Serious: Yes (Other)
  Sender: FDA-Public Use
  Company Number: AUR-APL-2013-01166

PATIENT
  Age: 77 Year
  Sex: Male

DRUGS (4)
  1. ALFUZOSIN (ALFUZOSIN) [Suspect]
  2. CO-PROXAMOL [Suspect]
  3. OFLOXACIN [Suspect]
  4. WARFARIN (WARFARIN) [Suspect]

REACTIONS (6)
  - Erythema [None]
  - Petechiae [None]
  - Tendon pain [None]
  - Excoriation [None]
  - Dyspnoea [None]
  - Dysgeusia [None]
